FAERS Safety Report 8202197-4 (Version None)
Quarter: 2012Q1

REPORT INFORMATION
  Report Type: 
  Country: None (occurrence: None)
  Receive Date: 20120312
  Receipt Date: 20120306
  Transmission Date: 20120608
  Serious: Yes (Hospitalization)
  Sender: FDA-Public Use
  Company Number: US-BAYER-2012-023027

PATIENT
  Age: 24 Year
  Sex: Female
  Weight: 107.3 kg

DRUGS (3)
  1. NAPROXEN [Concomitant]
     Indication: PAIN
     Dosage: UNK UNK, PRN
     Route: 048
  2. LEXAPRO [Concomitant]
     Indication: DEPRESSION
     Dosage: 20 MG, QD
     Route: 048
  3. YAZ [Suspect]
     Dosage: UNK

REACTIONS (1)
  - PULMONARY EMBOLISM [None]
